FAERS Safety Report 5231751-7 (Version None)
Quarter: 2007Q1

REPORT INFORMATION
  Report Type: 
  Country: None (occurrence: None)
  Receive Date: 20070206
  Receipt Date: 20070201
  Transmission Date: 20070707
  Serious: Yes (Hospitalization, Other)
  Sender: FDA-Public Use
  Company Number: US-BOEHRINGER INGELHEIM PHARMACEUTICALS, INC.-2006-BP-10055BP

PATIENT
  Sex: Female
  Weight: 82.1 kg

DRUGS (10)
  1. SPIRIVA [Suspect]
     Indication: CHRONIC OBSTRUCTIVE PULMONARY DISEASE
     Route: 055
     Dates: start: 20060201, end: 20060815
  2. ADVAIR DISKUS 100/50 [Concomitant]
     Indication: CHRONIC OBSTRUCTIVE PULMONARY DISEASE
     Dates: start: 20041105, end: 20060815
  3. DIOVAN [Concomitant]
     Indication: HYPERTENSION
  4. PROTONIX [Concomitant]
     Indication: GASTROOESOPHAGEAL REFLUX DISEASE
  5. ZOLOFT [Concomitant]
     Indication: DEPRESSION
  6. NAPROSYN [Concomitant]
  7. VYTORIN [Concomitant]
  8. HYDROCHLOROTHIAZIDE [Concomitant]
  9. SINGULAIR [Concomitant]
     Dates: start: 20041105
  10. ATROVENT [Concomitant]
     Dates: start: 20041007

REACTIONS (3)
  - ATELECTASIS [None]
  - PULMONARY FIBROSIS [None]
  - PULMONARY GRANULOMA [None]
